FAERS Safety Report 5929898-2 (Version None)
Quarter: 2008Q4

REPORT INFORMATION
  Report Type: 
  Country: None (occurrence: None)
  Receive Date: 20081024
  Receipt Date: 20081010
  Transmission Date: 20090506
  Serious: Yes (Life-Threatening)
  Sender: FDA-Public Use
  Company Number: GB-GENENTECH-219707

PATIENT
  Sex: Female
  Weight: 48.98 kg

DRUGS (10)
  1. BEVACIZUMAB [Suspect]
     Indication: COLON CANCER
     Dosage: 225 MG, Q2W
     Route: 042
     Dates: start: 20050718, end: 20051107
  2. OXALIPLATIN [Suspect]
     Indication: COLON CANCER
     Dosage: 130 MG, Q2W
     Route: 042
     Dates: start: 20050718, end: 20051107
  3. LEUCOVORIN CALCIUM [Suspect]
     Indication: COLON CANCER
     Dosage: 310 MG, 4/MONTH
     Route: 042
     Dates: start: 20050718, end: 20051107
  4. FLUOROURACIL [Suspect]
     Indication: COLON CANCER
     Dosage: 475 MG, Q2W
     Route: 042
     Dates: start: 20050718, end: 20051107
  5. PAROXETINE HCL [Concomitant]
     Indication: DRUG USE FOR UNKNOWN INDICATION
  6. WARFARIN SODIUM [Concomitant]
     Indication: DRUG USE FOR UNKNOWN INDICATION
     Dates: start: 20050729
  7. NASEPTIN [Concomitant]
     Indication: DRUG USE FOR UNKNOWN INDICATION
     Dates: start: 20050816
  8. ONDANSETRON [Concomitant]
     Indication: DRUG USE FOR UNKNOWN INDICATION
     Dates: start: 20050718, end: 20051107
  9. DEXAMETHASONE 0.5MG TAB [Concomitant]
     Indication: DRUG USE FOR UNKNOWN INDICATION
     Dates: start: 20050718, end: 20051107
  10. LANSOPRAZOLE [Concomitant]
     Indication: DRUG USE FOR UNKNOWN INDICATION
     Dates: start: 20050831

REACTIONS (1)
  - DRUG HYPERSENSITIVITY [None]
